FAERS Safety Report 8596349-1 (Version None)
Quarter: 2012Q3

REPORT INFORMATION
  Report Type: 
  Country: None (occurrence: None)
  Receive Date: 20120815
  Receipt Date: 20120806
  Transmission Date: 20120928
  Serious: Yes (Hospitalization, Other)
  Sender: FDA-Public Use
  Company Number: DE-ROCHE-1099051

PATIENT
  Age: 85 Year
  Sex: Female
  Weight: 72 kg

DRUGS (1)
  1. ACTEMRA [Suspect]
     Indication: RHEUMATOID ARTHRITIS
     Route: 042
     Dates: start: 20120404

REACTIONS (3)
  - CHEST PAIN [None]
  - HAND FRACTURE [None]
  - FALL [None]
